FAERS Safety Report 16652512 (Version 1)
Quarter: 2019Q3

REPORT INFORMATION
  Report Type: Spontaneous
  Country: US (occurrence: US)
  Receive Date: 20190731
  Receipt Date: 20190731
  Transmission Date: 20191004
  Serious: Yes (Other)
  Sender: FDA-Public Use
  Company Number: None

PATIENT
  Age: 65 Year
  Sex: Male

DRUGS (12)
  1. XELJANZ [Suspect]
     Active Substance: TOFACITINIB CITRATE
     Indication: RHEUMATOID ARTHRITIS
     Route: 048
     Dates: start: 20180207
  2. CELECOXIB. [Concomitant]
     Active Substance: CELECOXIB
  3. OMEPRAZOLE. [Concomitant]
     Active Substance: OMEPRAZOLE
  4. HYDROCODONE [Concomitant]
     Active Substance: HYDROCODONE
  5. SERTRALLINE [Concomitant]
  6. LORAZEPAM. [Concomitant]
     Active Substance: LORAZEPAM
  7. LYRICA [Concomitant]
     Active Substance: PREGABALIN
  8. OXYCODONE [Concomitant]
     Active Substance: OXYCODONE
  9. TAMSULOSIN [Concomitant]
     Active Substance: TAMSULOSIN
  10. ZOLPIDEM [Concomitant]
     Active Substance: ZOLPIDEM TARTRATE
  11. FOLIC ACID. [Concomitant]
     Active Substance: FOLIC ACID
  12. TOLTERODINE [Concomitant]
     Active Substance: TOLTERODINE

REACTIONS (1)
  - Basal cell carcinoma [None]

NARRATIVE: CASE EVENT DATE: 20190730
